FAERS Safety Report 15662950 (Version 2)
Quarter: 2018Q4

REPORT INFORMATION
  Report Type: Spontaneous
  Country: US (occurrence: US)
  Receive Date: 20181127
  Receipt Date: 20181204
  Transmission Date: 20190205
  Serious: No
  Sender: FDA-Public Use
  Company Number: US-SA-2018SA320171

PATIENT
  Age: 83 Year
  Sex: Male

DRUGS (2)
  1. LANTUS [Suspect]
     Active Substance: INSULIN GLARGINE
     Indication: TYPE 1 DIABETES MELLITUS
     Dosage: 30 IU ONCE
     Route: 065
     Dates: start: 201507
  2. NOVOLOG [Concomitant]
     Active Substance: INSULIN ASPART
     Route: 065

REACTIONS (4)
  - Pancreatic disorder [Unknown]
  - Injury associated with device [Unknown]
  - Device operational issue [Unknown]
  - Incorrect dose administered by device [Unknown]
